FAERS Safety Report 8600194 (Version 2)
Quarter: 2014Q2

REPORT INFORMATION
  Report Type: Spontaneous
  Country: IT (occurrence: IT)
  Receive Date: 20120605
  Receipt Date: 20140603
  Transmission Date: 20141212
  Serious: Yes (Other)
  Sender: FDA-Public Use
  Company Number: IT-WATSON-2012-09377

PATIENT
  Age: 3 Year
  Sex: Male

DRUGS (1)
  1. IBUPROFEN (UNKNOWN) [Suspect]
     Indication: PRODUCT USED FOR UNKNOWN INDICATION
     Dosage: 10 MG/KG, TID
     Route: 048

REACTIONS (4)
  - Obstruction gastric [Recovered/Resolved]
  - Prepyloric stenosis [Recovered/Resolved]
  - Gastritis haemorrhagic [Recovered/Resolved]
  - Gastric ulcer [Recovered/Resolved]
